FAERS Safety Report 6763501-7 (Version None)
Quarter: 2010Q2

REPORT INFORMATION
  Report Type: 
  Country: None (occurrence: None)
  Receive Date: 20100608
  Receipt Date: 20100521
  Transmission Date: 20101027
  Serious: Yes (Other)
  Sender: FDA-Public Use
  Company Number: 2010-00549

PATIENT
  Age: 58 Year
  Sex: Female
  Weight: 78.5 kg

DRUGS (5)
  1. SIMVASTATIN [Suspect]
     Indication: HYPERCHOLESTEROLAEMIA
     Dosage: 40 MG, ORAL; 20 MG, ORAL;
     Route: 048
     Dates: start: 20030117, end: 20060515
  2. SIMVASTATIN [Suspect]
     Indication: HYPERCHOLESTEROLAEMIA
     Dosage: 40 MG, ORAL; 20 MG, ORAL;
     Route: 048
     Dates: start: 20060516, end: 20100415
  3. BENDROFLUMETHIAZIDE [Concomitant]
  4. OMEPRAZOLE [Concomitant]
  5. SERTRALINE HCL [Concomitant]

REACTIONS (3)
  - ABNORMAL BEHAVIOUR [None]
  - MEMORY IMPAIRMENT [None]
  - PSYCHIATRIC SYMPTOM [None]
